FAERS Safety Report 7998483-3 (Version None)
Quarter: 2011Q4

REPORT INFORMATION
  Report Type: 
  Country: None (occurrence: None)
  Receive Date: 20111221
  Receipt Date: 20111212
  Transmission Date: 20120403
  Serious: Yes (Other)
  Sender: FDA-Public Use
  Company Number: FR-ELI_LILLY_AND_COMPANY-FR201112004412

PATIENT
  Sex: Female

DRUGS (3)
  1. PROZAC [Suspect]
     Route: 048
  2. LEVOTHYROXINE SODIUM [Concomitant]
  3. TRANXENE [Concomitant]

REACTIONS (2)
  - FOETAL HYPOKINESIA [None]
  - MATERNAL EXPOSURE DURING PREGNANCY [None]
